FAERS Safety Report 20896263 (Version 3)
Quarter: 2022Q2

REPORT INFORMATION
  Report Type: Other
  Country: NL (occurrence: NL)
  Receive Date: 20220531
  Receipt Date: 20220622
  Transmission Date: 20220720
  Serious: Yes (Other)
  Sender: FDA-Public Use
  Company Number: NL-FRESENIUS KABI-FK202205223

PATIENT
  Age: 38 Year
  Sex: Female

DRUGS (12)
  1. CYCLOPHOSPHAMIDE [Suspect]
     Active Substance: CYCLOPHOSPHAMIDE
     Indication: Glomerulonephritis membranous
     Route: 065
     Dates: start: 20170907
  2. CYCLOPHOSPHAMIDE [Suspect]
     Active Substance: CYCLOPHOSPHAMIDE
     Route: 048
     Dates: start: 20180907
  3. VELCADE [Suspect]
     Active Substance: BORTEZOMIB
     Indication: Glomerulonephritis membranous
     Route: 065
     Dates: start: 20190528
  4. RITUXIMAB [Suspect]
     Active Substance: RITUXIMAB
     Indication: Glomerulonephritis membranous
     Dosage: 2X1G
     Route: 042
     Dates: start: 201712
  5. RITUXIMAB [Suspect]
     Active Substance: RITUXIMAB
     Dosage: REINTRODUCE RITUXIMAB(1 G)
     Route: 042
     Dates: start: 20190403
  6. RITUXIMAB [Suspect]
     Active Substance: RITUXIMAB
     Route: 042
     Dates: start: 20190318
  7. MYCOPHENOLATE MOFETIL [Suspect]
     Active Substance: MYCOPHENOLATE MOFETIL
     Indication: Glomerulonephritis membranous
     Route: 065
     Dates: start: 201606
  8. DEXAMETHASONE [Suspect]
     Active Substance: DEXAMETHASONE
     Indication: Glomerulonephritis membranous
     Route: 065
     Dates: start: 20190528
  9. PREDNISOLONE [Suspect]
     Active Substance: PREDNISOLONE
     Indication: Glomerulonephritis membranous
     Route: 065
     Dates: start: 201606
  10. RITUXIMAB [Suspect]
     Active Substance: RITUXIMAB
     Indication: Glomerulonephritis membranous
     Dosage: CUMULATIVE DOSE, 4 G ,REINTRODUCE RITUXIMAB(2 G)
     Route: 065
     Dates: start: 201606
  11. DARZALEX [Suspect]
     Active Substance: DARATUMUMAB
     Indication: Glomerulonephritis membranous
     Dosage: CONCENTRATE FOR SOLUTION FOR INFUSION
     Route: 042
     Dates: start: 20200623
  12. PREDNISOLONE [Concomitant]
     Active Substance: PREDNISOLONE
     Indication: Glomerulonephritis membranous
     Dates: start: 201606

REACTIONS (6)
  - Autoimmune disorder [Unknown]
  - Neuropathy peripheral [Unknown]
  - Off label use [Unknown]
  - Drug intolerance [Recovering/Resolving]
  - Therapy non-responder [Unknown]
  - Leukopenia [Unknown]

NARRATIVE: CASE EVENT DATE: 20181001
